FAERS Safety Report 20360633 (Version 1)
Quarter: 2022Q1

REPORT INFORMATION
  Report Type: Spontaneous
  Country: US (occurrence: None)
  Receive Date: 20220120
  Receipt Date: 20220120
  Transmission Date: 20220423
  Serious: Yes (Death)
  Sender: FDA-Public Use
  Company Number: None

PATIENT
  Sex: Female

DRUGS (1)
  1. DOFETILIDE [Suspect]
     Active Substance: DOFETILIDE
     Indication: Product used for unknown indication
     Dosage: THERAPY END DATE: -DEC-2022??TAKE ONE CAPSULE BY MOUTH TWICE DAILY?
     Route: 048
     Dates: start: 20200327, end: 202212

REACTIONS (1)
  - Death [None]

NARRATIVE: CASE EVENT DATE: 20211201
